FAERS Safety Report 16253730 (Version 1)
Quarter: 2019Q2

REPORT INFORMATION
  Report Type: Spontaneous
  Country: US (occurrence: US)
  Receive Date: 20190430
  Receipt Date: 20190430
  Transmission Date: 20190711
  Serious: Yes (Other)
  Sender: FDA-Public Use
  Company Number: US-VIIV HEALTHCARE LIMITED-US2019AMR075870

PATIENT
  Sex: Female

DRUGS (1)
  1. LEXIVA [Suspect]
     Active Substance: FOSAMPRENAVIR CALCIUM

REACTIONS (2)
  - Hepatic enzyme increased [Unknown]
  - Liver injury [Unknown]
